FAERS Safety Report 6046025-4 (Version None)
Quarter: 2009Q1

REPORT INFORMATION
  Report Type: 
  Country: None (occurrence: None)
  Receive Date: 20090116
  Receipt Date: 20090106
  Transmission Date: 20090719
  Serious: Yes (Hospitalization)
  Sender: FDA-Public Use
  Company Number: KV200900033

PATIENT
  Age: 55 Year
  Sex: Male
  Weight: 70.3 kg

DRUGS (3)
  1. MORPHINE SULFATE [Suspect]
     Indication: BREAKTHROUGH PAIN
     Dosage: 15 MG, QID PRN, ORAL
     Route: 048
     Dates: start: 20080101, end: 20081001
  2. VALIUM [Concomitant]
  3. OXYCONTIN [Concomitant]

REACTIONS (5)
  - DIZZINESS [None]
  - FALL [None]
  - HEAD INJURY [None]
  - OVERDOSE [None]
  - PRODUCT QUALITY ISSUE [None]
